FAERS Safety Report 11993014 (Version 2)
Quarter: 2016Q3

REPORT INFORMATION
  Report Type: Spontaneous
  Country: US (occurrence: US)
  Receive Date: 20160203
  Receipt Date: 20160930
  Transmission Date: 20161109
  Serious: No
  Sender: FDA-Public Use
  Company Number: US-ASTRAZENECA-2016SE07649

PATIENT
  Age: 31482 Day
  Sex: Male
  Weight: 88.5 kg

DRUGS (13)
  1. LANSOPRAZOLE. [Concomitant]
     Active Substance: LANSOPRAZOLE
     Dosage: 40.0MG UNKNOWN
     Route: 048
  2. CYCLOBENZAPRINE [Concomitant]
     Active Substance: CYCLOBENZAPRINE
     Dosage: 10.0MG UNKNOWN
     Route: 048
  3. DOXYCYCLINE. [Concomitant]
     Active Substance: DOXYCYCLINE
     Dosage: 100.0MG UNKNOWN
     Route: 048
  4. VACLOFEN [Concomitant]
     Dosage: 10.0MG UNKNOWN
     Route: 048
  5. TAMSULOSIN [Concomitant]
     Active Substance: TAMSULOSIN
     Dosage: 0.4MG UNKNOWN
     Route: 048
  6. VITAMIN B1 [Concomitant]
     Active Substance: THIAMINE HYDROCHLORIDE
     Dosage: 1000.0MG UNKNOWN
     Route: 048
  7. FUROSEMIDE. [Concomitant]
     Active Substance: FUROSEMIDE
     Dosage: 20.0MG UNKNOWN
     Route: 048
  8. IRESSA [Interacting]
     Active Substance: GEFITINIB
     Indication: LUNG CARCINOMA CELL TYPE UNSPECIFIED STAGE 0
     Route: 048
  9. ANTIBIOTIC [Interacting]
     Active Substance: UNSPECIFIED INGREDIENT
     Route: 065
  10. TRIAMCINOLONE ACETONIDE. [Concomitant]
     Active Substance: TRIAMCINOLONE ACETONIDE
     Dosage: 0.1% UNKNOWN
     Route: 065
  11. IRESSA [Suspect]
     Active Substance: GEFITINIB
     Indication: LUNG CARCINOMA CELL TYPE UNSPECIFIED STAGE 0
     Route: 048
     Dates: start: 20151230
  12. VITAMIN D3 [Concomitant]
     Active Substance: CHOLECALCIFEROL
     Dosage: 2000.0UCI UNKNOWN
     Route: 048
  13. TERAZOSIN [Concomitant]
     Active Substance: TERAZOSIN\TERAZOSIN HYDROCHLORIDE
     Dosage: 10.0MG UNKNOWN
     Route: 048

REACTIONS (5)
  - Urinary tract infection [Unknown]
  - Drug interaction [Unknown]
  - Pain in extremity [Unknown]
  - Urine output decreased [Unknown]
  - Chromaturia [Unknown]

NARRATIVE: CASE EVENT DATE: 20160113
